FAERS Safety Report 9669481 (Version 2)
Quarter: 2013Q4

REPORT INFORMATION
  Report Type: Spontaneous
  Country: DE (occurrence: None)
  Receive Date: 20131101
  Receipt Date: 20131220
  Transmission Date: 20140711
  Serious: Yes (Disabling)
  Sender: FDA-Public Use
  Company Number: SYM-2013-12261

PATIENT
  Age: 77 Year
  Sex: Female

DRUGS (4)
  1. 5-FU [Suspect]
     Indication: COLORECTAL CANCER METASTATIC
     Route: 040
     Dates: start: 20130823, end: 20130823
  2. IRINOTECAN [Suspect]
     Indication: COLORECTAL CANCER METASTATIC
     Route: 041
     Dates: start: 20130823, end: 20130823
  3. LEUCOVORIN [Suspect]
     Route: 041
  4. AFLIBERCEPT [Suspect]
     Route: 041

REACTIONS (2)
  - Mucosal inflammation [None]
  - Aphthous stomatitis [None]
